FAERS Safety Report 10432832 (Version 1)
Quarter: 2014Q3

REPORT INFORMATION
  Report Type: Spontaneous
  Country: US (occurrence: None)
  Receive Date: 20140904
  Receipt Date: 20140904
  Transmission Date: 20150326
  Serious: Yes (Other)
  Sender: FDA-Public Use
  Company Number: None

PATIENT
  Age: 52 Year
  Sex: Female
  Weight: 83.2 kg

DRUGS (3)
  1. BUPROPION XL [Suspect]
     Active Substance: BUPROPION
     Indication: ANXIETY
     Route: 048
     Dates: start: 2007, end: 2014
  2. BUPROPION XL [Suspect]
     Active Substance: BUPROPION
     Indication: MAJOR DEPRESSION
     Route: 048
     Dates: start: 2007, end: 2014
  3. BUPROPION XL [Suspect]
     Active Substance: BUPROPION
     Indication: PANIC ATTACK
     Route: 048
     Dates: start: 2007, end: 2014

REACTIONS (4)
  - Anxiety [None]
  - Product substitution issue [None]
  - Depression [None]
  - General physical health deterioration [None]

NARRATIVE: CASE EVENT DATE: 20140606
